FAERS Safety Report 11880765 (Version 1)
Quarter: 2015Q4

REPORT INFORMATION
  Report Type: Spontaneous
  Country: DK (occurrence: FR)
  Receive Date: 20151230
  Receipt Date: 20151230
  Transmission Date: 20160305
  Serious: Yes (Hospitalization)
  Sender: FDA-Public Use
  Company Number: FR-FRI-1000081925

PATIENT
  Age: 39 Year
  Sex: Female
  Weight: 89 kg

DRUGS (8)
  1. ESCITALOPRAM [Suspect]
     Active Substance: ESCITALOPRAM OXALATE
     Dosage: OVERDOSE ON AN UNKNOWN DOSE ONCE
     Route: 048
     Dates: start: 20151007, end: 20151007
  2. TERCIAN [Suspect]
     Active Substance: CYAMEMAZINE
     Dosage: OVERDOSE ON AN UNKNOWN DOSE ONCE
     Route: 048
     Dates: start: 20151007, end: 20151007
  3. XANAX [Suspect]
     Active Substance: ALPRAZOLAM
     Dosage: OVERDOSE OF AN UNKNOWN DOSE ONCE
     Route: 048
     Dates: start: 20151007, end: 20151007
  4. ESCITALOPRAM [Suspect]
     Active Substance: ESCITALOPRAM OXALATE
     Indication: PRODUCT USED FOR UNKNOWN INDICATION
     Dosage: 20 MG
     Route: 048
  5. TERCIAN [Suspect]
     Active Substance: CYAMEMAZINE
     Indication: PRODUCT USED FOR UNKNOWN INDICATION
     Dosage: 25 MG
     Route: 048
  6. IMOVANE [Suspect]
     Active Substance: ZOPICLONE
     Dosage: OVERDOSE ON AN UNKNOWN DOSE ONCE
     Route: 048
     Dates: start: 20151007, end: 20151007
  7. IMOVANE [Suspect]
     Active Substance: ZOPICLONE
     Indication: PRODUCT USED FOR UNKNOWN INDICATION
     Dosage: 1 DOSAGE FORM
     Route: 048
  8. XANAX [Suspect]
     Active Substance: ALPRAZOLAM
     Indication: PRODUCT USED FOR UNKNOWN INDICATION
     Dosage: 8 MG
     Route: 048

REACTIONS (2)
  - Malaise [Recovered/Resolved]
  - Toxicity to various agents [Recovered/Resolved]

NARRATIVE: CASE EVENT DATE: 20151007
